FAERS Safety Report 23443022 (Version 5)
Quarter: 2024Q3

REPORT INFORMATION
  Report Type: Spontaneous
  Country: CA (occurrence: CA)
  Receive Date: 20240125
  Receipt Date: 20240708
  Transmission Date: 20241017
  Serious: Yes (Other)
  Sender: PFIZER
  Company Number: CA-PFIZER INC-202400022156

PATIENT
  Age: 64 Year
  Sex: Male

DRUGS (9)
  1. RUXIENCE [Suspect]
     Active Substance: RITUXIMAB-PVVR
     Indication: Rheumatoid arthritis
     Dosage: 1G DAY 1 AND DAY 15  Q 6 MONTHS
     Route: 042
     Dates: start: 20210907, end: 20210921
  2. RUXIENCE [Suspect]
     Active Substance: RITUXIMAB-PVVR
     Dosage: 1G DAY 1 AND DAY 15 Q 6 MONTHS
     Route: 042
     Dates: start: 20220329, end: 20220506
  3. RUXIENCE [Suspect]
     Active Substance: RITUXIMAB-PVVR
     Dosage: 1G DAY 1 AND DAY 15 Q 6 MONTHS
     Route: 042
     Dates: start: 20221109, end: 20221123
  4. RUXIENCE [Suspect]
     Active Substance: RITUXIMAB-PVVR
     Dosage: 1G DAY 1 AND DAY 15 15 Q 6 MONTHS
     Route: 042
     Dates: start: 20230524, end: 20230607
  5. RUXIENCE [Suspect]
     Active Substance: RITUXIMAB-PVVR
     Dosage: 1000 MG ,DAY 1 AND DAY 15 Q 6 MONTHS
     Route: 042
     Dates: start: 20231123
  6. RUXIENCE [Suspect]
     Active Substance: RITUXIMAB-PVVR
     Dosage: 1000 MG ,DAY 1 AND DAY 15 Q 6 MONTHS
     Route: 042
     Dates: start: 20240207
  7. METHOTREXATE [Concomitant]
     Active Substance: METHOTREXATE
     Dosage: UNK
  8. PLAQUENIL [Concomitant]
     Active Substance: HYDROXYCHLOROQUINE SULFATE
     Dosage: 200 MG, 2X/DAY
     Route: 048
     Dates: start: 201802
  9. PREDNISONE [Concomitant]
     Active Substance: PREDNISONE
     Dosage: 1 DF,DOSAGE NOT AVAILABLE TAKEN ON AND OFF
     Dates: start: 2017

REACTIONS (3)
  - Phlebitis [Not Recovered/Not Resolved]
  - Necrosis [Unknown]
  - Infection [Unknown]

NARRATIVE: CASE EVENT DATE: 20240101
